FAERS Safety Report 22143636 (Version 1)
Quarter: 2023Q1

REPORT INFORMATION
  Report Type: Report from Study
  Country: US (occurrence: US)
  Receive Date: 20230327
  Receipt Date: 20230327
  Transmission Date: 20230418
  Serious: Yes (Other)
  Sender: FDA-Public Use
  Company Number: US-PFIZER INC-202300127328

PATIENT

DRUGS (3)
  1. GEMCITABINE HYDROCHLORIDE [Suspect]
     Active Substance: GEMCITABINE HYDROCHLORIDE
     Indication: Diffuse large B-cell lymphoma
     Dosage: ON DAYS 2 AND 16 OF EACH 28-DAY CYCLE
     Route: 042
  2. OXALIPLATIN [Suspect]
     Active Substance: OXALIPLATIN
     Indication: Diffuse large B-cell lymphoma
     Dosage: ON DAYS 2 AND 16 OF EACH 28-DAY CYCLE
     Route: 042
  3. MT-3724 [Suspect]
     Active Substance: MT-3724
     Indication: Diffuse large B-cell lymphoma
     Dosage: 1-H INTRAVENOUS INFUSION ON DAYS 1, 3, 5, 8, 10, AND 12 OF EACH 28-DAY CYCLE, CYCLE 1

REACTIONS (1)
  - Capillary leak syndrome [Unknown]
